FAERS Safety Report 4847900-6 (Version None)
Quarter: 2005Q4

REPORT INFORMATION
  Report Type: 
  Country: None (occurrence: None)
  Receive Date: 20051206
  Receipt Date: 20051206
  Transmission Date: 20060501
  Serious: Yes (Life-Threatening, Hospitalization)
  Sender: FDA-Public Use
  Company Number: None

PATIENT
  Age: 75 Year
  Sex: Female
  Weight: 70.2 kg

DRUGS (14)
  1. OPTIMARK [Suspect]
     Indication: VENTRICULAR DYSFUNCTION
     Dosage: 28 ML ONCE IV BOLUS
     Route: 040
     Dates: start: 20040604, end: 20040705
  2. PROTONIX [Concomitant]
  3. PROZAC [Concomitant]
  4. ALBUTEROL [Concomitant]
  5. ATROVENT [Concomitant]
  6. BUDESONIDE [Concomitant]
  7. FLEXERIL [Concomitant]
  8. ASPIRIN [Concomitant]
  9. LIPITOR [Concomitant]
  10. COLACE [Concomitant]
  11. AMIODARONE HCL [Concomitant]
  12. LANOXIN [Concomitant]
  13. LEVAQUIN [Concomitant]
  14. TOPROL-XL [Concomitant]

REACTIONS (4)
  - ATRIAL FIBRILLATION [None]
  - CEREBROVASCULAR ACCIDENT [None]
  - POST PROCEDURAL COMPLICATION [None]
  - THROMBOCYTOPENIA [None]
